FAERS Safety Report 9784090 (Version 2)
Quarter: 2014Q1

REPORT INFORMATION
  Report Type: Spontaneous
  Country: JP (occurrence: JP)
  Receive Date: 20131226
  Receipt Date: 20140203
  Transmission Date: 20141002
  Serious: Yes (Other)
  Sender: FDA-Public Use
  Company Number: JP-PFIZER INC-2013365546

PATIENT
  Age: 73 Year
  Sex: Male

DRUGS (15)
  1. LYRICA [Suspect]
     Indication: CANCER PAIN
     Dosage: 25 MG, 1X/DAY
     Route: 048
     Dates: start: 20131216, end: 20131219
  2. OXINORM [Suspect]
     Indication: CANCER PAIN
     Dosage: UNK
     Dates: start: 20131216
  3. HERBESSER R [Concomitant]
     Dosage: 100 MG, 2X/DAY
     Dates: start: 20040524
  4. INDERAL [Concomitant]
     Dosage: 10 MG, 1X/DAY
     Dates: start: 20130313, end: 20130911
  5. INDERAL [Concomitant]
     Dosage: 10 MG, 2X/DAY
     Dates: start: 20130912
  6. RIKKUNSHINTO [Concomitant]
     Dosage: 2.5 G, 3X/DAY
     Dates: start: 20100402
  7. DAI-KENCHU-TO [Concomitant]
     Dosage: 2.5 G, 3X/DAY
     Dates: start: 20110413
  8. PANTOSIN [Concomitant]
     Dosage: 200 MG, 3X/DAY
     Dates: start: 20110413
  9. MAGNESIUM OXIDE [Concomitant]
     Dosage: 2 G, DAILY IN 3 DIVIDED DOSES
     Dates: start: 20110413
  10. VEMAS S [Concomitant]
     Dosage: 1 DF, 3X/DAY
     Dates: start: 20130208
  11. SENNOSIDE [Concomitant]
     Dosage: 24 MG, 1X/DAY
     Dates: start: 20130510
  12. RIZE [Concomitant]
     Dosage: 5 MG, 2X/DAY
     Dates: start: 20110413
  13. NITROPEN [Concomitant]
     Dosage: 0.3 MG, UNK
     Dates: start: 20121216
  14. NITRODERM TTS [Concomitant]
     Dosage: 25 MG, 1X/DAY
     Dates: start: 20110413
  15. PANAPIDIN [Concomitant]
     Dosage: 100 MG, 2X/DAY
     Dates: start: 20040524

REACTIONS (3)
  - Off label use [Unknown]
  - Parkinsonism [Unknown]
  - Motor dysfunction [Unknown]
